FAERS Safety Report 9623206 (Version 1)
Quarter: 2013Q4

REPORT INFORMATION
  Report Type: Spontaneous
  Country: CN (occurrence: None)
  Receive Date: 20131010
  Receipt Date: 20131010
  Transmission Date: 20140711
  Serious: Yes (Other)
  Sender: FDA-Public Use
  Company Number: 7240525

PATIENT
  Age: 32 Year
  Sex: Female

DRUGS (1)
  1. EUTHYROX [Suspect]
     Indication: THYROIDECTOMY
     Dates: start: 200611, end: 20130921

REACTIONS (1)
  - Liver injury [None]
